FAERS Safety Report 20741914 (Version 1)
Quarter: 2022Q2

REPORT INFORMATION
  Report Type: Report from Study
  Country: US (occurrence: US)
  Receive Date: 20220423
  Receipt Date: 20220423
  Transmission Date: 20220720
  Serious: Yes (Hospitalization)
  Sender: FDA-Public Use
  Company Number: US-ABBVIE-22K-163-4368131-00

PATIENT
  Sex: Female

DRUGS (7)
  1. SYNTHROID [Suspect]
     Active Substance: LEVOTHYROXINE SODIUM
     Indication: Autoimmune thyroiditis
     Route: 048
  2. SYMBICORT [Concomitant]
     Active Substance: BUDESONIDE\FORMOTEROL FUMARATE DIHYDRATE
     Indication: Respiratory disorder
  3. DIAVASC [Concomitant]
     Indication: Nutritional supplementation
  4. MASTICA [Concomitant]
     Indication: Nutritional supplementation
  5. VITAMIN C [Concomitant]
     Active Substance: ASCORBIC ACID
     Indication: Nutritional supplementation
  6. BIOTIN [Concomitant]
     Active Substance: BIOTIN
     Indication: Nutritional supplementation
  7. NAC [Concomitant]
     Indication: Nutritional supplementation

REACTIONS (7)
  - COVID-19 [Recovered/Resolved with Sequelae]
  - Periorbital swelling [Not Recovered/Not Resolved]
  - Oropharyngeal pain [Not Recovered/Not Resolved]
  - Gastric disorder [Not Recovered/Not Resolved]
  - Infection parasitic [Not Recovered/Not Resolved]
  - Thyroid function test abnormal [Not Recovered/Not Resolved]
  - Fatigue [Not Recovered/Not Resolved]

NARRATIVE: CASE EVENT DATE: 20200101
